FAERS Safety Report 4300481-8 (Version None)
Quarter: 2004Q1

REPORT INFORMATION
  Report Type: 
  Country: None (occurrence: None)
  Receive Date: 20040218
  Receipt Date: 20040127
  Transmission Date: 20041129
  Serious: Yes (Other)
  Sender: FDA-Public Use
  Company Number: USA040157732

PATIENT
  Age: 66 Year
  Sex: Male

DRUGS (1)
  1. HUMULIN 70/30 [Suspect]
     Dosage: 45 U/2 DAY

REACTIONS (3)
  - CATARACT [None]
  - DIABETES MELLITUS INADEQUATE CONTROL [None]
  - EYE HAEMORRHAGE [None]
